FAERS Safety Report 9629454 (Version 2)
Quarter: 2013Q4

REPORT INFORMATION
  Report Type: Spontaneous
  Country: DE (occurrence: DE)
  Receive Date: 20131017
  Receipt Date: 20131017
  Transmission Date: 20140711
  Serious: Yes (Other)
  Sender: FDA-Public Use
  Company Number: DE-ASTRAZENECA-2013SE64027

PATIENT
  Age: 19041 Day
  Sex: Male

DRUGS (5)
  1. CARBOSTESIN [Suspect]
     Indication: RADIOTHERAPY
     Dosage: 2 ML, EVENLY DISTRIBUTED ON BOTH SIDES
     Route: 065
     Dates: start: 20130423
  2. CARBOSTESIN [Suspect]
     Indication: SPINAL OPERATION
     Dosage: 2 ML, EVENLY DISTRIBUTED ON BOTH SIDES
     Route: 065
     Dates: start: 20130423
  3. CARBOSTESIN [Suspect]
     Indication: RADIOTHERAPY
     Dosage: 5 ML, PER FACET JOINT
     Route: 065
     Dates: start: 20130424
  4. CARBOSTESIN [Suspect]
     Indication: SPINAL OPERATION
     Dosage: 5 ML, PER FACET JOINT
     Route: 065
     Dates: start: 20130424
  5. TRIAMCINOLON [Concomitant]
     Dates: start: 20130423

REACTIONS (17)
  - Circulatory collapse [Recovered/Resolved]
  - Agitation [Not Recovered/Not Resolved]
  - Abnormal behaviour [Not Recovered/Not Resolved]
  - Disturbance in attention [Not Recovered/Not Resolved]
  - Chest discomfort [Not Recovered/Not Resolved]
  - Pain [Unknown]
  - Sleep disorder [Recovering/Resolving]
  - Irritability [Not Recovered/Not Resolved]
  - Dizziness [Recovering/Resolving]
  - Hypertension [Not Recovered/Not Resolved]
  - Muscle twitching [Recovering/Resolving]
  - Hypoaesthesia [Not Recovered/Not Resolved]
  - Palpitations [Not Recovered/Not Resolved]
  - Paraesthesia [Not Recovered/Not Resolved]
  - Heart rate increased [Not Recovered/Not Resolved]
  - Dyspnoea [Recovered/Resolved]
  - Syncope [Recovered/Resolved]
